FAERS Safety Report 6312722-6 (Version None)
Quarter: 2009Q3

REPORT INFORMATION
  Report Type: 
  Country: None (occurrence: None)
  Receive Date: 20090814
  Receipt Date: 20090814
  Transmission Date: 20100115
  Serious: Yes (Other)
  Sender: FDA-Public Use
  Company Number: None

PATIENT
  Age: 59 Year
  Sex: Female
  Weight: 81.6475 kg

DRUGS (1)
  1. CLARITIN-D 24 HOUR [Suspect]
     Indication: SINUS CONGESTION
     Dosage: 1 PILL DAILY ORAL
     Route: 048
     Dates: start: 20081210, end: 20081212

REACTIONS (3)
  - ANOSMIA [None]
  - EUPHORIC MOOD [None]
  - PARANASAL SINUS HYPERSECRETION [None]
